FAERS Safety Report 5236830-6 (Version None)
Quarter: 2007Q1

REPORT INFORMATION
  Report Type: 
  Country: None (occurrence: None)
  Receive Date: 20061208
  Receipt Date: 20050715
  Transmission Date: 20070707
  Serious: Yes (Other)
  Sender: FDA-Public Use
  Company Number: 2005UW10588

PATIENT
  Age: 61 Year
  Sex: Female
  Weight: 72.574 kg

DRUGS (2)
  1. CRESTOR [Suspect]
     Indication: HYPERCHOLESTEROLAEMIA
     Dosage: 10 MG QD PO
     Route: 048
     Dates: start: 20050601
  2. NEXIUM [Concomitant]

REACTIONS (5)
  - HEADACHE [None]
  - MYALGIA [None]
  - POLLAKIURIA [None]
  - RENAL DISORDER [None]
  - THROAT IRRITATION [None]
